FAERS Safety Report 4312264-3 (Version None)
Quarter: 2004Q1

REPORT INFORMATION
  Report Type: 
  Country: None (occurrence: None)
  Receive Date: 20040303
  Receipt Date: 20040219
  Transmission Date: 20041129
  Serious: Yes (Hospitalization)
  Sender: FDA-Public Use
  Company Number: 040224-0000292

PATIENT
  Sex: Male

DRUGS (1)
  1. DESOXYN [Suspect]

REACTIONS (2)
  - CARDIOMYOPATHY [None]
  - DRUG ABUSER [None]
